FAERS Safety Report 22106433 (Version 3)
Quarter: 2023Q1

REPORT INFORMATION
  Report Type: Report from Study
  Country: US (occurrence: US)
  Receive Date: 20230317
  Receipt Date: 20230324
  Transmission Date: 20230418
  Serious: No
  Sender: FDA-Public Use
  Company Number: US-SANOFI-01521720

PATIENT
  Age: 39 Year
  Sex: Female

DRUGS (2)
  1. DUPIXENT [Suspect]
     Active Substance: DUPILUMAB
     Indication: Dermatitis atopic
     Dosage: UNK UNK, 1X
     Route: 065
     Dates: start: 20230203, end: 20230203
  2. DUPIXENT [Suspect]
     Active Substance: DUPILUMAB
     Dosage: 300 MG, QOW
     Route: 065

REACTIONS (7)
  - Pain [Unknown]
  - Eczema [Unknown]
  - Skin swelling [Unknown]
  - Scratch [Unknown]
  - Rash macular [Unknown]
  - Rash pruritic [Unknown]
  - Rash papular [Unknown]

NARRATIVE: CASE EVENT DATE: 20230304
